FAERS Safety Report 8151139 (Version 5)
Quarter: 2013Q1

REPORT INFORMATION
  Report Type: Spontaneous
  Country: US (occurrence: US)
  Receive Date: 20110922
  Receipt Date: 20130226
  Transmission Date: 20140127
  Serious: No
  Sender: FDA-Public Use
  Company Number: US-ASTRAZENECA-2011SE41369

PATIENT
  Age: 43 Year
  Sex: Female
  Weight: 68 kg

DRUGS (5)
  1. NEXIUM [Suspect]
     Route: 048
  2. SEROQUEL [Suspect]
     Indication: SLEEP DISORDER
     Route: 048
     Dates: start: 2010, end: 2011
  3. SEROQUEL [Suspect]
     Indication: SLEEP DISORDER
     Route: 048
  4. OTC MEDICATION [Suspect]
     Route: 065
  5. BP PILLS [Concomitant]

REACTIONS (12)
  - Alcoholic [Unknown]
  - Weight increased [Unknown]
  - Malaise [Unknown]
  - Ear disorder [Unknown]
  - Chest pain [Unknown]
  - Hypertension [Unknown]
  - Insomnia [Not Recovered/Not Resolved]
  - Drug withdrawal syndrome [Unknown]
  - Adverse event [Unknown]
  - Dizziness [Unknown]
  - Intentional drug misuse [Unknown]
  - Drug dose omission [Unknown]
